FAERS Safety Report 15515004 (Version 1)
Quarter: 2018Q4

REPORT INFORMATION
  Report Type: Spontaneous
  Country: FR (occurrence: FR)
  Receive Date: 20181017
  Receipt Date: 20181017
  Transmission Date: 20190205
  Serious: Yes (Hospitalization)
  Sender: FDA-Public Use
  Company Number: FR-TEVA-2018-FR-964956

PATIENT
  Age: 47 Year
  Sex: Female
  Weight: 46 kg

DRUGS (4)
  1. THERALENE 4 POUR CENT, SOLUTION BUVABLE EN GOUTTES [Interacting]
     Active Substance: TRIMEPRAZINE
     Indication: DEPRESSIVE SYMPTOM
     Dosage: 20 GTT AS REQUIRED
     Route: 048
  2. TERCIAN 25 MG, COMPRIM? PELLICUL? S?CABLE [Interacting]
     Active Substance: CYAMEMAZINE
     Indication: DEPRESSIVE SYMPTOM
     Dosage: 50 MILLIGRAM DAILY;
     Route: 048
  3. PAROXETINE. [Suspect]
     Active Substance: PAROXETINE
     Indication: DEPRESSIVE SYMPTOM
     Route: 048
  4. SUBUTEX [Interacting]
     Active Substance: BUPRENORPHINE HYDROCHLORIDE
     Indication: DRUG DEPENDENCE
     Dosage: 16 MILLIGRAM DAILY;
     Route: 048
     Dates: start: 2008

REACTIONS (3)
  - Constipation [Recovered/Resolved]
  - Drug interaction [Unknown]
  - Faecaloma [Recovered/Resolved]

NARRATIVE: CASE EVENT DATE: 20180806
